FAERS Safety Report 21746287 (Version 1)
Quarter: 2022Q4

REPORT INFORMATION
  Report Type: Spontaneous
  Country: US (occurrence: US)
  Receive Date: 20221219
  Receipt Date: 20221219
  Transmission Date: 20230112
  Serious: No
  Sender: FDA-Public Use
  Company Number: US-APOTEX-2022AP010068

PATIENT
  Sex: Female

DRUGS (1)
  1. BUTORPHANOL TARTRATE [Suspect]
     Active Substance: BUTORPHANOL TARTRATE
     Indication: Product used for unknown indication
     Dosage: UNK
     Route: 045
     Dates: start: 202207

REACTIONS (4)
  - Discomfort [Unknown]
  - Manufacturing materials issue [Unknown]
  - Product taste abnormal [Unknown]
  - Device dispensing error [Unknown]

NARRATIVE: CASE EVENT DATE: 20220701
